FAERS Safety Report 9419571 (Version 2)
Quarter: 2013Q3

REPORT INFORMATION
  Report Type: Spontaneous
  Country: US (occurrence: None)
  Receive Date: 20130723
  Receipt Date: 20130812
  Transmission Date: 20140515
  Serious: Yes (Other)
  Sender: FDA-Public Use
  Company Number: AUR-APL-2013-05996

PATIENT
  Age: 44 Year
  Sex: Male

DRUGS (2)
  1. PRAMIPEXOLE [Suspect]
     Indication: PARKINSON^S DISEASE
  2. COCAINE (COCAINE) [Suspect]
     Indication: OFF LABEL USE

REACTIONS (5)
  - Social phobia [None]
  - Pathological gambling [None]
  - Impulse-control disorder [None]
  - Drug dependence [None]
  - Drug abuse [None]
